FAERS Safety Report 12840599 (Version 6)
Quarter: 2017Q3

REPORT INFORMATION
  Report Type: Spontaneous
  Country: US (occurrence: US)
  Receive Date: 20161012
  Receipt Date: 20170711
  Transmission Date: 20171127
  Serious: No
  Sender: FDA-Public Use
  Company Number: US-PFIZER INC-2016474870

PATIENT
  Age: 77 Year
  Sex: Female

DRUGS (2)
  1. IBRANCE [Suspect]
     Active Substance: PALBOCICLIB
     Indication: BREAST CANCER FEMALE
     Dosage: 125 MG, DAILY (FOR 21 DAYS)
     Route: 048
     Dates: start: 20160919
  2. IBRANCE [Suspect]
     Active Substance: PALBOCICLIB
     Dosage: 100 MG, 1X/DAY
     Route: 048
     Dates: start: 20160920

REACTIONS (7)
  - Onychoclasis [Unknown]
  - Nausea [Not Recovered/Not Resolved]
  - Nail disorder [Unknown]
  - Chapped lips [Unknown]
  - Rash [Unknown]
  - Chills [Unknown]
  - Lip swelling [Unknown]

NARRATIVE: CASE EVENT DATE: 20161010
